FAERS Safety Report 5012396-0 (Version None)
Quarter: 2006Q2

REPORT INFORMATION
  Report Type: 
  Country: None (occurrence: None)
  Receive Date: 20060414
  Receipt Date: 20060117
  Transmission Date: 20061013
  Serious: No
  Sender: FDA-Public Use
  Company Number: 2006SP000294

PATIENT
  Age: 49 Year
  Sex: Female
  Weight: 83.0083 kg

DRUGS (7)
  1. LUNESTA [Suspect]
     Indication: INSOMNIA
     Dosage: 2 MG;HS;ORAL
     Route: 048
     Dates: start: 20060115
  2. ATENOL [Concomitant]
  3. PREVACID [Concomitant]
  4. NADOLOL [Concomitant]
  5. ALBUTEROL [Concomitant]
  6. FOLIC ACID [Concomitant]
  7. ZANTAC [Concomitant]

REACTIONS (1)
  - INSOMNIA [None]
